FAERS Safety Report 12176949 (Version 1)
Quarter: 2016Q1

REPORT INFORMATION
  Report Type: Spontaneous
  Country: HR (occurrence: HR)
  Receive Date: 20160314
  Receipt Date: 20160314
  Transmission Date: 20160526
  Serious: Yes (Hospitalization)
  Sender: FDA-Public Use
  Company Number: HR-ACTAVIS-2016-05502

PATIENT
  Age: 74 Year
  Sex: Female
  Weight: 60 kg

DRUGS (4)
  1. CONCOR COR [Concomitant]
     Active Substance: BISOPROLOL FUMARATE
     Indication: PRODUCT USED FOR UNKNOWN INDICATION
     Dosage: 1.25 MG, UNK
     Route: 048
  2. DOCETAXEL (UNKNOWN) [Suspect]
     Active Substance: DOCETAXEL
     Indication: BREAST CANCER
     Dosage: UNK
     Route: 041
     Dates: start: 20160209
  3. LIPTIN [Concomitant]
     Indication: PRODUCT USED FOR UNKNOWN INDICATION
     Dosage: 20 MG, UNK
     Route: 048
  4. LOSARTIC PLUS [Concomitant]
     Active Substance: HYDROCHLOROTHIAZIDE\LOSARTAN POTASSIUM
     Indication: PRODUCT USED FOR UNKNOWN INDICATION
     Dosage: 1 DF, UNK
     Route: 048

REACTIONS (5)
  - Asthenia [Recovering/Resolving]
  - Hyponatraemia [Recovering/Resolving]
  - Pain [Recovering/Resolving]
  - Nausea [Recovering/Resolving]
  - Neutropenia [Recovering/Resolving]

NARRATIVE: CASE EVENT DATE: 20160211
